FAERS Safety Report 15647033 (Version 3)
Quarter: 2019Q1

REPORT INFORMATION
  Report Type: Spontaneous
  Country: AM (occurrence: AM)
  Receive Date: 20181122
  Receipt Date: 20190110
  Transmission Date: 20190417
  Serious: Yes (Other)
  Sender: FDA-Public Use
  Company Number: AM-ROCHE-2218213

PATIENT
  Age: 54 Year
  Sex: Female

DRUGS (4)
  1. HYDROCORTIZON [Concomitant]
     Indication: RASH
  2. HYDROCORTIZON [Concomitant]
     Indication: DRY SKIN
  3. PERJETA [Suspect]
     Active Substance: PERTUZUMAB
     Indication: BREAST CANCER
     Route: 042
     Dates: start: 20180623, end: 201811
  4. HERCEPTIN [Suspect]
     Active Substance: TRASTUZUMAB
     Indication: BREAST CANCER
     Route: 042
     Dates: start: 20180623, end: 201811

REACTIONS (1)
  - Cardiac dysfunction [Not Recovered/Not Resolved]

NARRATIVE: CASE EVENT DATE: 20181116
